FAERS Safety Report 5112712-5 (Version None)
Quarter: 2006Q3

REPORT INFORMATION
  Report Type: 
  Country: None (occurrence: None)
  Receive Date: 20060922
  Receipt Date: 20060904
  Transmission Date: 20061208
  Serious: Yes (Life-Threatening, Hospitalization)
  Sender: FDA-Public Use
  Company Number: NL-GLAXOSMITHKLINE-B0437492A

PATIENT
  Age: 51 Year
  Sex: Male
  Weight: 100 kg

DRUGS (2)
  1. BUPROPION HYDROCHLORIDE [Suspect]
     Dosage: 150MG PER DAY
     Dates: start: 20060809
  2. NO CONCURRENT MEDICATION [Concomitant]

REACTIONS (5)
  - ACUTE CORONARY SYNDROME [None]
  - ANGINA PECTORIS [None]
  - CHEST DISCOMFORT [None]
  - HEART INJURY [None]
  - MYOCARDIAL INFARCTION [None]
